FAERS Safety Report 9847209 (Version 1)
Quarter: 2014Q1

REPORT INFORMATION
  Report Type: Spontaneous
  Country: US (occurrence: US)
  Receive Date: 20140127
  Receipt Date: 20140127
  Transmission Date: 20141002
  Serious: Yes (Other)
  Sender: FDA-Public Use
  Company Number: US-PFIZER INC-2014024489

PATIENT
  Age: 60 Year
  Sex: Female

DRUGS (3)
  1. LYRICA [Suspect]
     Indication: BURNING SENSATION
     Dosage: 50 MG, 1X/DAY
  2. GABAPENTIN [Suspect]
     Indication: BURNING SENSATION
     Dosage: 100 MG, 1X/DAY
  3. VAGIFEM [Concomitant]
     Dosage: 20 MG, 2X/WEEK
     Route: 067

REACTIONS (5)
  - Off label use [Unknown]
  - Dysstasia [Unknown]
  - Dizziness [Unknown]
  - Headache [Unknown]
  - Disturbance in attention [Unknown]
